FAERS Safety Report 7604300-3 (Version None)
Quarter: 2011Q3

REPORT INFORMATION
  Report Type: 
  Country: None (occurrence: None)
  Receive Date: 20110712
  Receipt Date: 20110629
  Transmission Date: 20111222
  Serious: Yes (Hospitalization)
  Sender: FDA-Public Use
  Company Number: PHHY2011IT59888

PATIENT
  Sex: Female

DRUGS (4)
  1. FRISIUM [Concomitant]
     Dosage: 10 MG, UNK
     Route: 048
  2. OXCARBAZEPINE [Suspect]
     Dosage: 600 MG, UNK
     Dates: start: 20070101
  3. KEPPRA [Concomitant]
     Dosage: UNK
  4. MACLADIN [Concomitant]
     Dosage: UNK

REACTIONS (3)
  - LUNG DISORDER [None]
  - HYPONATRAEMIA [None]
  - PYREXIA [None]
